FAERS Safety Report 9180977 (Version 1)
Quarter: 2013Q1

REPORT INFORMATION
  Report Type: Spontaneous
  Country: US (occurrence: US)
  Receive Date: 20130322
  Receipt Date: 20130322
  Transmission Date: 20140127
  Serious: Yes (Other)
  Sender: FDA-Public Use
  Company Number: PHEH2013US006645

PATIENT
  Age: 86 Year
  Sex: Female

DRUGS (1)
  1. EXELON PATCH [Suspect]
     Indication: DEMENTIA ALZHEIMER^S TYPE
     Dosage: 4.6 MG, DAILY
     Route: 062
     Dates: start: 20130301, end: 20130318

REACTIONS (4)
  - Delusion [Recovering/Resolving]
  - Confusional state [Recovering/Resolving]
  - Hallucination [Recovering/Resolving]
  - Agitation [Recovering/Resolving]
